FAERS Safety Report 17545388 (Version 1)
Quarter: 2020Q1

REPORT INFORMATION
  Report Type: Spontaneous
  Country: ES (occurrence: ES)
  Receive Date: 20200316
  Receipt Date: 20200316
  Transmission Date: 20200409
  Serious: Yes (Life-Threatening, Other)
  Sender: FDA-Public Use
  Company Number: ES-SUN PHARMACEUTICAL INDUSTRIES LTD-2020RR-240286

PATIENT
  Age: 86 Year
  Sex: Female
  Weight: 46 kg

DRUGS (6)
  1. ATORVASTATIN [Suspect]
     Active Substance: ATORVASTATIN
     Indication: PROPHYLAXIS
     Dosage: 8M MG AL DIA VIA ORAL
     Route: 048
     Dates: start: 202002
  2. ENALAPRIL/HIDROCLOROTIAZIDA 20 MG/12,5 MG COMPRIMIDO [Concomitant]
     Indication: PRODUCT USED FOR UNKNOWN INDICATION
     Dosage: ENALAPRIL 20 MG HIDROCLOROTIAZIDA 12.5 MG
     Route: 048
     Dates: start: 2019
  3. ACIDOURSODEOXICOLICO [Concomitant]
     Indication: PRODUCT USED FOR UNKNOWN INDICATION
     Dosage: 300 MILLIGRAM
     Route: 048
     Dates: start: 2019
  4. ACIDOACETILSALICILICO [Concomitant]
     Indication: PRODUCT USED FOR UNKNOWN INDICATION
     Dosage: VIA ORAL
     Route: 048
     Dates: start: 2019
  5. OMEPRAZOL [Concomitant]
     Active Substance: OMEPRAZOLE
     Indication: PRODUCT USED FOR UNKNOWN INDICATION
     Dosage: 20 MILLIGRAM, DAILY
     Route: 048
     Dates: start: 2019
  6. RIVAROXABAN [Concomitant]
     Active Substance: RIVAROXABAN
     Indication: PRODUCT USED FOR UNKNOWN INDICATION
     Dosage: 15 MILLIGRAM
     Route: 048
     Dates: start: 2019

REACTIONS (6)
  - Hepatitis [Recovering/Resolving]
  - Renal failure [Recovering/Resolving]
  - Abdominal pain [Recovering/Resolving]
  - Sepsis [Recovering/Resolving]
  - Diarrhoea [Recovering/Resolving]
  - Colitis [Recovering/Resolving]

NARRATIVE: CASE EVENT DATE: 202002
